FAERS Safety Report 9753257 (Version 3)
Quarter: 2015Q3

REPORT INFORMATION
  Report Type: Spontaneous
  Country: US (occurrence: US)
  Receive Date: 20131213
  Receipt Date: 20150805
  Transmission Date: 20151125
  Serious: No
  Sender: FDA-Public Use
  Company Number: US-GILEAD-2010-0026983

PATIENT
  Age: 42 Year
  Sex: Male
  Weight: 70.31 kg

DRUGS (6)
  1. FLOMAX [Concomitant]
     Active Substance: TAMSULOSIN HYDROCHLORIDE
  2. LORAZEPAM. [Concomitant]
     Active Substance: LORAZEPAM
  3. WARFARIN [Concomitant]
     Active Substance: WARFARIN
  4. ATENOLOL. [Concomitant]
     Active Substance: ATENOLOL
  5. IMODIUM [Concomitant]
     Active Substance: LOPERAMIDE HYDROCHLORIDE
  6. LETAIRIS [Suspect]
     Active Substance: AMBRISENTAN
     Indication: PULMONARY ARTERIAL HYPERTENSION
     Route: 048
     Dates: start: 20091119

REACTIONS (3)
  - Nasal congestion [Unknown]
  - Hunger [Unknown]
  - Insomnia [Unknown]
